FAERS Safety Report 7455589-5 (Version None)
Quarter: 2011Q2

REPORT INFORMATION
  Report Type: 
  Country: None (occurrence: None)
  Receive Date: 20110503
  Receipt Date: 20110418
  Transmission Date: 20111010
  Serious: Yes (Death)
  Sender: FDA-Public Use
  Company Number: DE-ROCHE-773467

PATIENT
  Sex: Male
  Weight: 79 kg

DRUGS (4)
  1. BEVACIZUMAB [Suspect]
     Route: 042
     Dates: start: 20110112, end: 20110223
  2. FOLINSYRE [Concomitant]
     Dates: start: 20110112, end: 20110223
  3. IRINOTECAN [Concomitant]
     Dates: start: 20110112, end: 20110223
  4. FLUOROURACIL [Concomitant]
     Dates: start: 20110112, end: 20110223

REACTIONS (2)
  - NO THERAPEUTIC RESPONSE [None]
  - NEOPLASM MALIGNANT [None]
